FAERS Safety Report 11684025 (Version 5)
Quarter: 2016Q1

REPORT INFORMATION
  Report Type: Spontaneous
  Country: US (occurrence: US)
  Receive Date: 20151029
  Receipt Date: 20160129
  Transmission Date: 20160525
  Serious: Yes (Hospitalization, Other)
  Sender: FDA-Public Use
  Company Number: US-ASTRAZENECA-2015SF03535

PATIENT
  Age: 28260 Day
  Sex: Male
  Weight: 88 kg

DRUGS (18)
  1. SUTENT [Suspect]
     Active Substance: SUNITINIB MALATE
     Indication: RENAL CELL CARCINOMA
     Route: 048
     Dates: start: 20151020
  2. HYDROCODONE [Suspect]
     Active Substance: HYDROCODONE
     Indication: ABDOMINAL PAIN
     Route: 065
     Dates: start: 20151109
  3. LEVOTHYROXINE. [Concomitant]
     Active Substance: LEVOTHYROXINE
  4. SUTENT [Suspect]
     Active Substance: SUNITINIB MALATE
     Indication: RENAL CELL CARCINOMA
     Route: 048
     Dates: start: 20150919, end: 20151101
  5. RAMIPRIL. [Concomitant]
     Active Substance: RAMIPRIL
  6. SUTENT [Suspect]
     Active Substance: SUNITINIB MALATE
     Indication: RENAL CELL CARCINOMA
     Route: 048
     Dates: start: 20160118
  7. COUMADIN [Concomitant]
     Active Substance: WARFARIN SODIUM
     Dates: end: 20151020
  8. SUTENT [Suspect]
     Active Substance: SUNITINIB MALATE
     Indication: RENAL CELL CARCINOMA
     Route: 048
     Dates: start: 20151204, end: 20151231
  9. VYTORIN [Concomitant]
     Active Substance: EZETIMIBE\SIMVASTATIN
  10. AMARYL [Concomitant]
     Active Substance: GLIMEPIRIDE
  11. PRILOSEC [Suspect]
     Active Substance: OMEPRAZOLE MAGNESIUM
     Route: 048
  12. ALLOPURINOL. [Concomitant]
     Active Substance: ALLOPURINOL
  13. FERROUS SULFATE [Concomitant]
     Active Substance: FERROUS SULFATE\FERROUS SULFATE, DRIED
  14. METOPROLOL. [Suspect]
     Active Substance: METOPROLOL
     Route: 065
  15. LASIX [Concomitant]
     Active Substance: FUROSEMIDE
  16. CRESTOR [Suspect]
     Active Substance: ROSUVASTATIN CALCIUM
     Route: 048
  17. BABY ASPIRIN [Concomitant]
     Active Substance: ASPIRIN
     Dates: end: 20151020
  18. EPITOL [Concomitant]
     Active Substance: CARBAMAZEPINE

REACTIONS (13)
  - Peritoneal neoplasm [Unknown]
  - Gastrointestinal haemorrhage [Unknown]
  - Full blood count decreased [Unknown]
  - Dyspnoea [Unknown]
  - Haematochezia [Unknown]
  - Renal cancer stage IV [Unknown]
  - Abdominal pain [Not Recovered/Not Resolved]
  - Abdominal discomfort [Unknown]
  - Diverticulitis [Unknown]
  - Haemorrhage [Unknown]
  - Constipation [Recovering/Resolving]
  - Drug hypersensitivity [Unknown]
  - Blood disorder [Recovering/Resolving]

NARRATIVE: CASE EVENT DATE: 20151101
